FAERS Safety Report 6484246-7 (Version None)
Quarter: 2009Q4

REPORT INFORMATION
  Report Type: 
  Country: None (occurrence: None)
  Receive Date: 20091209
  Receipt Date: 20091203
  Transmission Date: 20100525
  Serious: Yes (Other)
  Sender: FDA-Public Use
  Company Number: B0611858A

PATIENT
  Sex: Female

DRUGS (4)
  1. RELENZA [Suspect]
     Indication: INFLUENZA
     Dosage: 10MG TWICE PER DAY
     Route: 055
     Dates: start: 20091119
  2. CLARITH [Concomitant]
     Dosage: 200MG TWICE PER DAY
     Route: 048
     Dates: start: 20091119
  3. MEDICON [Concomitant]
     Dosage: 30MG THREE TIMES PER DAY
     Route: 048
     Dates: start: 20091119
  4. POLARAMINE [Concomitant]
     Dosage: 2MG THREE TIMES PER DAY
     Route: 048
     Dates: start: 20091119

REACTIONS (1)
  - LOSS OF CONSCIOUSNESS [None]
